FAERS Safety Report 17715322 (Version 1)
Quarter: 2020Q2

REPORT INFORMATION
  Report Type: Report from Study
  Country: US (occurrence: US)
  Receive Date: 20200427
  Receipt Date: 20200427
  Transmission Date: 20200714
  Serious: Yes (Death)
  Sender: FDA-Public Use
  Company Number: US-ACTELION-A-NJ2019-188660

PATIENT
  Sex: Female
  Weight: 58.96 kg

DRUGS (5)
  1. UPTRAVI [Suspect]
     Active Substance: SELEXIPAG
     Indication: PULMONARY ARTERIAL HYPERTENSION
     Dosage: 200 MCG, BID
     Route: 048
  2. ADEMPAS [Concomitant]
     Active Substance: RIOCIGUAT
  3. UPTRAVI [Suspect]
     Active Substance: SELEXIPAG
     Dosage: 1600 MCG, BID
     Route: 048
  4. VELETRI [Suspect]
     Active Substance: EPOPROSTENOL
     Indication: PULMONARY ARTERIAL HYPERTENSION
     Dosage: 8 NG/KG, PER MIN
     Route: 042
  5. WARFARIN [Concomitant]
     Active Substance: WARFARIN

REACTIONS (10)
  - Oedema peripheral [Not Recovered/Not Resolved]
  - Abdominal distension [Unknown]
  - Fluid retention [Unknown]
  - Death [Fatal]
  - Productive cough [Unknown]
  - Arthritis [Unknown]
  - Cough [Unknown]
  - Rales [Unknown]
  - Pain in jaw [Unknown]
  - Dyspnoea [Unknown]
